FAERS Safety Report 8245181-7 (Version None)
Quarter: 2012Q1

REPORT INFORMATION
  Report Type: 
  Country: None (occurrence: None)
  Receive Date: 20120329
  Receipt Date: 20120322
  Transmission Date: 20120608
  Serious: No
  Sender: FDA-Public Use
  Company Number: US-BAYER-2012-029133

PATIENT

DRUGS (3)
  1. ALEVE (CAPLET) [Suspect]
     Route: 048
  2. CARDIZEM [Concomitant]
  3. TEGRETOL [Concomitant]

REACTIONS (2)
  - DEPRESSION [None]
  - CRYING [None]
